FAERS Safety Report 9217228 (Version 1)
Quarter: 2013Q1

REPORT INFORMATION
  Report Type: Spontaneous
  Country: US (occurrence: None)
  Receive Date: 20120827
  Receipt Date: 20120827
  Transmission Date: 20140127
  Serious: No
  Sender: FDA-Public Use
  Company Number: 353296

PATIENT
  Age: 55 Year
  Sex: Male

DRUGS (1)
  1. VICTOZA (LIRAGLUTIDE) SOLUTION FOR INJECTION, 6 MG/ML [Suspect]
     Indication: TYPE 2 DIABETES MELLITUS
     Route: 058
     Dates: start: 20120424, end: 20120517

REACTIONS (10)
  - Weight decreased [None]
  - Asthenia [None]
  - Fatigue [None]
  - Eructation [None]
  - Flatulence [None]
  - Abdominal distension [None]
  - Diarrhoea [None]
  - Vomiting [None]
  - Headache [None]
  - Blood glucose increased [None]
